APPROVED DRUG PRODUCT: SPECTROBID
Active Ingredient: BACAMPICILLIN HYDROCHLORIDE
Strength: 125MG/5ML
Dosage Form/Route: FOR SUSPENSION;ORAL
Application: N050556 | Product #001
Applicant: PFIZER LABORATORIES DIV PFIZER INC
Approved: Mar 23, 1982 | RLD: No | RS: No | Type: DISCN